FAERS Safety Report 25788538 (Version 1)
Quarter: 2025Q3

REPORT INFORMATION
  Report Type: Spontaneous
  Country: TW (occurrence: TW)
  Receive Date: 20250910
  Receipt Date: 20250910
  Transmission Date: 20251020
  Serious: Yes (Other)
  Sender: MERCK SHARP & DOHME LLC
  Company Number: TW-009507513-2325256

PATIENT
  Age: 52 Year
  Sex: Male

DRUGS (30)
  1. PEMBROLIZUMAB [Suspect]
     Active Substance: PEMBROLIZUMAB
     Indication: Squamous cell carcinoma of head and neck
     Route: 065
     Dates: start: 20230102
  2. PEMBROLIZUMAB [Suspect]
     Active Substance: PEMBROLIZUMAB
     Indication: Squamous cell carcinoma of head and neck
     Route: 065
     Dates: start: 20230118
  3. PEMBROLIZUMAB [Suspect]
     Active Substance: PEMBROLIZUMAB
     Indication: Squamous cell carcinoma of head and neck
     Route: 065
     Dates: start: 20230208
  4. PEMBROLIZUMAB [Suspect]
     Active Substance: PEMBROLIZUMAB
     Indication: Squamous cell carcinoma of head and neck
     Route: 065
     Dates: start: 20230413
  5. PEMBROLIZUMAB [Suspect]
     Active Substance: PEMBROLIZUMAB
     Indication: Squamous cell carcinoma of head and neck
     Route: 065
     Dates: start: 20230510
  6. PEMBROLIZUMAB [Suspect]
     Active Substance: PEMBROLIZUMAB
     Indication: Squamous cell carcinoma of head and neck
     Route: 065
     Dates: start: 20230602
  7. PEMBROLIZUMAB [Suspect]
     Active Substance: PEMBROLIZUMAB
     Indication: Squamous cell carcinoma of head and neck
     Route: 065
     Dates: start: 20230620
  8. PEMBROLIZUMAB [Suspect]
     Active Substance: PEMBROLIZUMAB
     Indication: Squamous cell carcinoma of head and neck
     Route: 065
     Dates: start: 20230712
  9. PEMBROLIZUMAB [Suspect]
     Active Substance: PEMBROLIZUMAB
     Indication: Squamous cell carcinoma of head and neck
     Route: 065
     Dates: start: 20230927
  10. PEMBROLIZUMAB [Suspect]
     Active Substance: PEMBROLIZUMAB
     Indication: Squamous cell carcinoma of head and neck
     Route: 065
     Dates: start: 20231019
  11. PEMBROLIZUMAB [Suspect]
     Active Substance: PEMBROLIZUMAB
     Indication: Squamous cell carcinoma of head and neck
     Route: 065
     Dates: start: 20231108
  12. PEMBROLIZUMAB [Suspect]
     Active Substance: PEMBROLIZUMAB
     Indication: Squamous cell carcinoma of head and neck
     Route: 065
     Dates: start: 20231128
  13. CISPLATIN [Suspect]
     Active Substance: CISPLATIN
     Indication: Squamous cell carcinoma of head and neck
     Route: 065
     Dates: start: 20230102
  14. CISPLATIN [Suspect]
     Active Substance: CISPLATIN
     Indication: Squamous cell carcinoma of head and neck
     Route: 065
     Dates: start: 20230118
  15. CISPLATIN [Suspect]
     Active Substance: CISPLATIN
     Indication: Squamous cell carcinoma of head and neck
     Route: 065
     Dates: start: 20230208
  16. CISPLATIN [Suspect]
     Active Substance: CISPLATIN
     Indication: Squamous cell carcinoma of head and neck
     Route: 065
     Dates: start: 20221214
  17. TEGAFUR [Suspect]
     Active Substance: TEGAFUR
     Indication: Squamous cell carcinoma of head and neck
     Route: 065
     Dates: start: 20221214
  18. TEGAFUR [Suspect]
     Active Substance: TEGAFUR
     Indication: Squamous cell carcinoma of head and neck
     Route: 065
     Dates: start: 20230102
  19. TEGAFUR [Suspect]
     Active Substance: TEGAFUR
     Indication: Squamous cell carcinoma of head and neck
     Route: 065
     Dates: start: 20230118
  20. TEGAFUR [Suspect]
     Active Substance: TEGAFUR
     Indication: Squamous cell carcinoma of head and neck
     Route: 065
     Dates: start: 20230208
  21. TEGAFUR [Suspect]
     Active Substance: TEGAFUR
     Indication: Squamous cell carcinoma of head and neck
     Route: 065
     Dates: start: 20230413
  22. TEGAFUR [Suspect]
     Active Substance: TEGAFUR
     Indication: Squamous cell carcinoma of head and neck
     Route: 065
     Dates: start: 20230510
  23. TEGAFUR [Suspect]
     Active Substance: TEGAFUR
     Indication: Squamous cell carcinoma of head and neck
     Route: 065
     Dates: start: 20230602
  24. TEGAFUR [Suspect]
     Active Substance: TEGAFUR
     Indication: Squamous cell carcinoma of head and neck
     Route: 065
     Dates: start: 20230620
  25. TEGAFUR [Suspect]
     Active Substance: TEGAFUR
     Indication: Squamous cell carcinoma of head and neck
     Route: 065
     Dates: start: 20230712
  26. TEGAFUR [Suspect]
     Active Substance: TEGAFUR
     Indication: Squamous cell carcinoma of head and neck
     Route: 065
     Dates: start: 20230927
  27. TEGAFUR [Suspect]
     Active Substance: TEGAFUR
     Indication: Squamous cell carcinoma of head and neck
     Route: 065
     Dates: start: 20231019
  28. TEGAFUR [Suspect]
     Active Substance: TEGAFUR
     Indication: Squamous cell carcinoma of head and neck
     Route: 065
     Dates: start: 20231108
  29. TEGAFUR [Suspect]
     Active Substance: TEGAFUR
     Indication: Squamous cell carcinoma of head and neck
     Route: 065
     Dates: start: 20231128
  30. TEGAFUR [Suspect]
     Active Substance: TEGAFUR
     Indication: Squamous cell carcinoma of head and neck
     Route: 065
     Dates: start: 202401

REACTIONS (11)
  - Tracheostomy [Unknown]
  - Inappropriate schedule of product administration [Unknown]
  - Inappropriate schedule of product administration [Unknown]
  - Inappropriate schedule of product administration [Unknown]
  - Inappropriate schedule of product administration [Unknown]
  - Inappropriate schedule of product administration [Unknown]
  - Inappropriate schedule of product administration [Unknown]
  - Inappropriate schedule of product administration [Unknown]
  - Inappropriate schedule of product administration [Unknown]
  - Inappropriate schedule of product administration [Unknown]
  - Inappropriate schedule of product administration [Unknown]

NARRATIVE: CASE EVENT DATE: 20230118
